FAERS Safety Report 11793137 (Version 1)
Quarter: 2015Q4

REPORT INFORMATION
  Report Type: Spontaneous
  Country: US (occurrence: None)
  Receive Date: 20151201
  Receipt Date: 20151201
  Transmission Date: 20160305
  Serious: Yes (Other)
  Sender: FDA-Public Use
  Company Number: None

PATIENT
  Age: 58 Year
  Sex: Male

DRUGS (3)
  1. PIMOZIDE 2 MG PAR PHARMACEUTICALS [Suspect]
     Active Substance: PIMOZIDE
     Indication: SCHIZOPHRENIA
     Dosage: PILLS
     Route: 048
     Dates: start: 20150926, end: 20151114
  2. AMBIEN [Concomitant]
     Active Substance: ZOLPIDEM TARTRATE
  3. LAMOTRIGINE. [Concomitant]
     Active Substance: LAMOTRIGINE

REACTIONS (3)
  - Product substitution issue [None]
  - Drug effect decreased [None]
  - Psychotic disorder [None]

NARRATIVE: CASE EVENT DATE: 20151107
